FAERS Safety Report 6667899-X (Version None)
Quarter: 2010Q2

REPORT INFORMATION
  Report Type: 
  Country: None (occurrence: None)
  Receive Date: 20100401
  Receipt Date: 20100315
  Transmission Date: 20101027
  Serious: Yes (Other)
  Sender: FDA-Public Use
  Company Number: JP-SOLVAY-00310001602

PATIENT
  Sex: Female

DRUGS (3)
  1. LUVOX [Suspect]
     Indication: DRUG USE FOR UNKNOWN INDICATION
     Dosage: ORAL
     Route: 048
  2. SEPAZON (CLOXAZOLAM) [Concomitant]
  3. DEPAS (ETIZOLAM) [Concomitant]

REACTIONS (1)
  - INTESTINAL HAEMORRHAGE [None]
